FAERS Safety Report 7900927-X (Version None)
Quarter: 2011Q4

REPORT INFORMATION
  Report Type: 
  Country: None (occurrence: None)
  Receive Date: 20111108
  Receipt Date: 20111025
  Transmission Date: 20120403
  Serious: Yes (Hospitalization, Other)
  Sender: FDA-Public Use
  Company Number: CA-ELI_LILLY_AND_COMPANY-CA201110006598

PATIENT
  Sex: Male

DRUGS (2)
  1. ZYPREXA [Suspect]
     Dosage: 7.5 MG, EACH EVENING
  2. LIPITOR [Concomitant]

REACTIONS (5)
  - DIABETES MELLITUS [None]
  - ARTERIOSCLEROSIS CORONARY ARTERY [None]
  - ANEURYSM RUPTURED [None]
  - SUBARACHNOID HAEMORRHAGE [None]
  - HYPERTENSION [None]
